FAERS Safety Report 18538633 (Version 1)
Quarter: 2020Q4

REPORT INFORMATION
  Report Type: Spontaneous
  Country: US (occurrence: US)
  Receive Date: 20201123
  Receipt Date: 20201123
  Transmission Date: 20210114
  Serious: Yes (Other)
  Sender: FDA-Public Use
  Company Number: US-BAXTER-2020BAX023534

PATIENT
  Age: 70 Year
  Sex: Male
  Weight: 104 kg

DRUGS (1)
  1. PRISMASOL BGK4/2.5 [Suspect]
     Active Substance: ANHYDROUS DEXTROSE\CALCIUM CHLORIDE\LACTIC ACID\MAGNESIUM CHLORIDE\POTASSIUM CHLORIDE\SODIUM BICARBONATE\SODIUM CHLORIDE
     Indication: RENAL REPLACEMENT THERAPY
     Route: 010
     Dates: start: 20201112, end: 20201113

REACTIONS (4)
  - Hypotension [Recovered/Resolved]
  - COVID-19 [Unknown]
  - Fluid retention [Recovered/Resolved]
  - Device issue [Recovered/Resolved]

NARRATIVE: CASE EVENT DATE: 202011
